FAERS Safety Report 8765693 (Version 1)
Quarter: 2012Q4

REPORT INFORMATION
  Report Type: 
  Country: TH (occurrence: TH)
  Receive Date: 20120904
  Receipt Date: 20120904
  Transmission Date: 20130627
  Serious: Yes (Other)
  Sender: FDA-Public Use
  Company Number: PHHY2012TH073764

PATIENT

DRUGS (4)
  1. CICLOSPORIN [Suspect]
  2. ETOPOSIDE [Suspect]
  3. CARBOPLATIN [Concomitant]
  4. VINCRISTINE [Concomitant]

REACTIONS (2)
  - Anaphylactic reaction [Unknown]
  - Neoplasm recurrence [None]
